FAERS Safety Report 11154592 (Version 1)
Quarter: 2015Q2

REPORT INFORMATION
  Report Type: Spontaneous
  Country: US (occurrence: None)
  Receive Date: 20150601
  Receipt Date: 20150601
  Transmission Date: 20150821
  Serious: Yes (Death)
  Sender: FDA-Public Use
  Company Number: None

PATIENT
  Age: 72 Year
  Sex: Male

DRUGS (2)
  1. AFINITOR [Suspect]
     Active Substance: EVEROLIMUS
     Indication: NEUROENDOCRINE TUMOUR
     Dosage: ONE TABLET QD ORAL
     Route: 048
     Dates: start: 20150223, end: 20150514
  2. AFINITOR [Suspect]
     Active Substance: EVEROLIMUS
     Indication: METASTASIS
     Dosage: ONE TABLET QD ORAL
     Route: 048
     Dates: start: 20150223, end: 20150514

REACTIONS (2)
  - Neuroendocrine tumour [None]
  - Malignant neoplasm progression [None]

NARRATIVE: CASE EVENT DATE: 20150514
